FAERS Safety Report 8106612-6 (Version None)
Quarter: 2012Q1

REPORT INFORMATION
  Report Type: 
  Country: None (occurrence: None)
  Receive Date: 20120202
  Receipt Date: 20120126
  Transmission Date: 20120608
  Serious: Yes (Life-Threatening, Hospitalization, Other)
  Sender: FDA-Public Use
  Company Number: US-ELI_LILLY_AND_COMPANY-US201201008934

PATIENT
  Sex: Male

DRUGS (5)
  1. ZYPREXA [Suspect]
     Indication: BIPOLAR DISORDER
     Dosage: 2.5 MG, UNK
  2. ZYPREXA [Suspect]
     Indication: MANIA
     Dosage: 10 MG, QD
     Dates: start: 20120113, end: 20120118
  3. DILANTIN [Concomitant]
  4. KEPPRA [Concomitant]
  5. HALDOL [Concomitant]
     Dosage: 60 MG, QD

REACTIONS (9)
  - STATUS EPILEPTICUS [None]
  - BLOOD SODIUM INCREASED [None]
  - MANIA [None]
  - DEPRESSION [None]
  - COMA [None]
  - INFECTION [None]
  - OFF LABEL USE [None]
  - PNEUMONIA ASPIRATION [None]
  - RESPIRATORY FAILURE [None]
